FAERS Safety Report 15053188 (Version 1)
Quarter: 2018Q2

REPORT INFORMATION
  Report Type: Report from Study
  Country: CA (occurrence: CA)
  Receive Date: 20180622
  Receipt Date: 20180622
  Transmission Date: 20180711
  Serious: Yes (Death, Hospitalization)
  Sender: FDA-Public Use
  Company Number: CA-ACTELION-A-NJ2018-171323

PATIENT
  Age: 71 Year
  Sex: Male

DRUGS (13)
  1. LOSEC [Concomitant]
     Active Substance: OMEPRAZOLE
  2. METFORMIN [Concomitant]
     Active Substance: METFORMIN HYDROCHLORIDE
  3. DIGOXIN. [Concomitant]
     Active Substance: DIGOXIN
  4. ASA [Concomitant]
     Active Substance: ASPIRIN
  5. UPTRAVI [Suspect]
     Active Substance: SELEXIPAG
     Indication: PULMONARY ARTERIAL HYPERTENSION
     Dosage: 200 MCG, BID
     Route: 048
     Dates: start: 20180416
  6. OPSUMIT [Suspect]
     Active Substance: MACITENTAN
     Indication: PULMONARY ARTERIAL HYPERTENSION
     Dosage: 10 MG, UNK
     Route: 048
     Dates: start: 20160128
  7. ROSUVASTATIN. [Concomitant]
     Active Substance: ROSUVASTATIN
  8. HYDROXYCHLOROQUINE [Concomitant]
     Active Substance: HYDROXYCHLOROQUINE
  9. LASIX [Concomitant]
     Active Substance: FUROSEMIDE
     Dosage: UNK, QD
  10. ADCIRCA [Concomitant]
     Active Substance: TADALAFIL
  11. CLONAZEPAM. [Concomitant]
     Active Substance: CLONAZEPAM
  12. UPTRAVI [Suspect]
     Active Substance: SELEXIPAG
     Dosage: 400 MCG, UNK
     Route: 048
  13. ELIQUIS [Concomitant]
     Active Substance: APIXABAN

REACTIONS (9)
  - Fluid retention [Recovered/Resolved]
  - Headache [Not Recovered/Not Resolved]
  - Dizziness [Recovered/Resolved]
  - Myalgia [Not Recovered/Not Resolved]
  - Blood pressure increased [Not Recovered/Not Resolved]
  - Pain in extremity [Unknown]
  - Feeling abnormal [Not Recovered/Not Resolved]
  - Asthenia [Recovered/Resolved]
  - Death [Fatal]

NARRATIVE: CASE EVENT DATE: 20180416
